FAERS Safety Report 16924584 (Version 1)
Quarter: 2019Q4

REPORT INFORMATION
  Report Type: Spontaneous
  Country: US (occurrence: US)
  Receive Date: 20190823
  Receipt Date: 20190823
  Transmission Date: 20200122
  Serious: Yes (Hospitalization)
  Sender: FDA-Public Use
  Company Number: None

PATIENT
  Age: 2 Year
  Sex: Male

DRUGS (1)
  1. VITAMIN K [Suspect]
     Active Substance: PHYTONADIONE
     Dates: start: 20170904

REACTIONS (5)
  - Poor feeding infant [None]
  - Insomnia [None]
  - Respiratory disorder neonatal [None]
  - Jaundice neonatal [None]
  - Hyperbilirubinaemia neonatal [None]

NARRATIVE: CASE EVENT DATE: 20170904
